FAERS Safety Report 18381088 (Version 1)
Quarter: 2020Q4

REPORT INFORMATION
  Report Type: Other
  Country: US (occurrence: US)
  Receive Date: 20201014
  Receipt Date: 20201014
  Transmission Date: 20210114
  Serious: Yes (Hospitalization)
  Sender: FDA-Public Use
  Company Number: US-ENCUBE-000009

PATIENT
  Age: 72 Year
  Sex: Female

DRUGS (1)
  1. CLINDAMYCIN. [Suspect]
     Active Substance: CLINDAMYCIN
     Indication: PRODUCT USED FOR UNKNOWN INDICATION
     Dosage: 5-DAY COURSE.
     Route: 048

REACTIONS (2)
  - Drug resistance [Unknown]
  - Necrotising soft tissue infection [Recovered/Resolved]
